FAERS Safety Report 4717984-4 (Version None)
Quarter: 2005Q3

REPORT INFORMATION
  Report Type: 
  Country: None (occurrence: None)
  Receive Date: 20050720
  Receipt Date: 20050712
  Transmission Date: 20060218
  Serious: Yes (Other)
  Sender: FDA-Public Use
  Company Number: PHBS2005BR10158

PATIENT
  Age: 72 Year
  Sex: Female
  Weight: 80 kg

DRUGS (4)
  1. DIOVAN AMLO [Suspect]
     Indication: HYPERTENSION
     Dosage: UNK, QD
     Route: 048
  2. ZACON [Concomitant]
     Dosage: 20 MG, QD
     Route: 048
  3. LEXEL [Concomitant]
     Indication: NERVOUS SYSTEM DISORDER
     Dosage: 25 MG, UNK
     Route: 048
  4. CLONAZEPAM [Concomitant]
     Indication: DEPRESSION
     Dosage: 2 TAB/NIGHT
     Route: 048

REACTIONS (2)
  - BLOOD PRESSURE INCREASED [None]
  - HEART RATE INCREASED [None]
